FAERS Safety Report 5732093-3 (Version None)
Quarter: 2008Q2

REPORT INFORMATION
  Report Type: 
  Country: None (occurrence: None)
  Receive Date: 20080508
  Receipt Date: 20080428
  Transmission Date: 20081010
  Serious: Yes (Life-Threatening)
  Sender: FDA-Public Use
  Company Number: JP-BAXTER-2008BH004025

PATIENT
  Age: 67 Year
  Sex: Male
  Weight: 58 kg

DRUGS (12)
  1. SUPRANE [Suspect]
     Indication: ANAESTHESIA
     Route: 055
     Dates: start: 20080422, end: 20080422
  2. NITROUS OXIDE [Suspect]
     Indication: ANAESTHESIA
     Route: 055
     Dates: start: 20080422, end: 20080422
  3. FENTANYL-100 [Suspect]
     Indication: PAIN
     Route: 042
     Dates: start: 20080422, end: 20080422
  4. PROPOFOL [Concomitant]
     Indication: INDUCTION OF ANAESTHESIA
     Route: 042
     Dates: start: 20080422, end: 20080422
  5. MUSCULAX [Concomitant]
     Indication: HYPOTONIA
     Route: 042
     Dates: start: 20080422, end: 20080422
  6. CEFAZOLIN SODIUM [Concomitant]
     Route: 042
     Dates: start: 20080422, end: 20080422
  7. ATROPINE [Concomitant]
     Route: 042
     Dates: start: 20080422, end: 20080422
  8. NEOSTIGMINE [Concomitant]
     Route: 042
     Dates: start: 20080422, end: 20080422
  9. MYSLEE [Concomitant]
     Indication: DRUG USE FOR UNKNOWN INDICATION
     Route: 048
     Dates: end: 20080421
  10. SPIROPENT [Concomitant]
     Indication: DRUG USE FOR UNKNOWN INDICATION
     Route: 048
     Dates: end: 20080421
  11. BUP-4 [Concomitant]
     Indication: DRUG USE FOR UNKNOWN INDICATION
     Route: 048
     Dates: end: 20080421
  12. MAGNESIUM OXIDE [Concomitant]
     Indication: DRUG USE FOR UNKNOWN INDICATION
     Route: 048
     Dates: end: 20080421

REACTIONS (3)
  - ALTERED STATE OF CONSCIOUSNESS [None]
  - NAUSEA [None]
  - RESPIRATORY ARREST [None]
